FAERS Safety Report 9445662 (Version 1)
Quarter: 2013Q3

REPORT INFORMATION
  Report Type: Report from Study
  Country: DE (occurrence: DE)
  Receive Date: 20130807
  Receipt Date: 20130807
  Transmission Date: 20140515
  Serious: Yes (Hospitalization)
  Sender: FDA-Public Use
  Company Number: DE-AMGEN-DEUCT2013055340

PATIENT
  Age: 19 Year
  Sex: Female

DRUGS (3)
  1. ETANERCEPT [Suspect]
     Indication: JUVENILE IDIOPATHIC ARTHRITIS
     Dosage: 50 MG, EVERY 14 DAYS
     Route: 065
     Dates: start: 20100413
  2. ETANERCEPT [Suspect]
     Dosage: 50 MG, WEEKLY
     Route: 065
     Dates: end: 20111215
  3. SULFASALAZINE [Concomitant]
     Indication: RHEUMATIC DISORDER
     Dosage: 3000 MG, UNK
     Dates: start: 20071010

REACTIONS (1)
  - Diarrhoea [Recovered/Resolved]
